FAERS Safety Report 8110353-9 (Version None)
Quarter: 2012Q1

REPORT INFORMATION
  Report Type: 
  Country: None (occurrence: None)
  Receive Date: 20120202
  Receipt Date: 20120125
  Transmission Date: 20120608
  Serious: Yes (Hospitalization)
  Sender: FDA-Public Use
  Company Number: AU-ASTRAZENECA-2012SE05123

PATIENT
  Age: 52 Year
  Sex: Female

DRUGS (1)
  1. SEROQUEL [Suspect]
     Indication: ANXIETY DISORDER
     Route: 048
     Dates: start: 20110704, end: 20111117

REACTIONS (4)
  - WEIGHT INCREASED [None]
  - DYSPNOEA [None]
  - MUSCLE RIGIDITY [None]
  - FOOD CRAVING [None]
